FAERS Safety Report 16182653 (Version 2)
Quarter: 2019Q2

REPORT INFORMATION
  Report Type: Spontaneous
  Country: US (occurrence: US)
  Receive Date: 20190411
  Receipt Date: 20190419
  Transmission Date: 20190711
  Serious: Yes (Death, Life-Threatening, Hospitalization, Other)
  Sender: FDA-Public Use
  Company Number: US-CIPLA LTD.-2019US01822

PATIENT

DRUGS (1)
  1. TERBINAFINE. [Suspect]
     Active Substance: TERBINAFINE
     Indication: ONYCHOMYCOSIS
     Dosage: UNK, DAILY
     Route: 065

REACTIONS (6)
  - Pleural effusion [Unknown]
  - Shock [Unknown]
  - Multiple organ dysfunction syndrome [Unknown]
  - Ascites [Unknown]
  - Acute hepatic failure [Fatal]
  - Hepatosplenomegaly [Unknown]
